FAERS Safety Report 12329164 (Version 1)
Quarter: 2016Q2

REPORT INFORMATION
  Report Type: Spontaneous
  Country: US (occurrence: US)
  Receive Date: 20160503
  Receipt Date: 20160503
  Transmission Date: 20160815
  Serious: Yes (Hospitalization, Other)
  Sender: FDA-Public Use
  Company Number: US-INCYTE CORPORATION-2016IN001451

PATIENT
  Sex: Female
  Weight: 69.48 kg

DRUGS (8)
  1. CARVEDILOL. [Concomitant]
     Active Substance: CARVEDILOL
     Indication: PRODUCT USED FOR UNKNOWN INDICATION
     Dosage: 6.25 MG, AS DIRECTED
     Route: 048
  2. POTASSIUM CHLORIDE. [Concomitant]
     Active Substance: POTASSIUM CHLORIDE
     Indication: PRODUCT USED FOR UNKNOWN INDICATION
     Dosage: 20 MEQ, QD
     Route: 048
  3. LISINOPRIL. [Concomitant]
     Active Substance: LISINOPRIL
     Indication: PRODUCT USED FOR UNKNOWN INDICATION
     Dosage: 5 MG, QD
     Route: 048
  4. ZOFRAN [Concomitant]
     Active Substance: ONDANSETRON HYDROCHLORIDE
     Indication: PRODUCT USED FOR UNKNOWN INDICATION
     Dosage: UNK
  5. JAKAFI [Suspect]
     Active Substance: RUXOLITINIB
     Indication: MYELOFIBROSIS
     Dosage: 10 MG, BID
     Route: 048
     Dates: start: 20160201
  6. LASIX [Concomitant]
     Active Substance: FUROSEMIDE
     Indication: PRODUCT USED FOR UNKNOWN INDICATION
     Dosage: 20 MG
  7. JAKAFI [Suspect]
     Active Substance: RUXOLITINIB
     Indication: MYELOFIBROSIS
  8. LASIX [Concomitant]
     Active Substance: FUROSEMIDE
     Dosage: 40 MG, PRN
     Route: 048

REACTIONS (16)
  - Iron deficiency anaemia [Unknown]
  - Oedema peripheral [Unknown]
  - Pruritus [Not Recovered/Not Resolved]
  - Orthopnoea [Unknown]
  - Fatigue [Unknown]
  - Renal failure [Unknown]
  - Cardiac failure congestive [Unknown]
  - Nasopharyngitis [Not Recovered/Not Resolved]
  - Fluid retention [Unknown]
  - Pallor [Unknown]
  - Diarrhoea [Unknown]
  - Insomnia [Unknown]
  - Hepatosplenomegaly [Unknown]
  - Nausea [Unknown]
  - Anaemia [Unknown]
  - Dyspnoea [Unknown]
